FAERS Safety Report 16229926 (Version 1)
Quarter: 2019Q2

REPORT INFORMATION
  Report Type: Spontaneous
  Country: JP (occurrence: JP)
  Receive Date: 20190423
  Receipt Date: 20190423
  Transmission Date: 20190711
  Serious: Yes (Other)
  Sender: FDA-Public Use
  Company Number: JP-TEVA-2019-JP-1041168

PATIENT
  Age: 64 Year
  Sex: Female

DRUGS (2)
  1. BENDAMUSTINE HYDROCHLORIDE. [Suspect]
     Active Substance: BENDAMUSTINE HYDROCHLORIDE
     Indication: B-CELL LYMPHOMA
     Dosage: 90 MG/M2, CYCLIC (ONCE DAILY)
     Route: 042
     Dates: start: 20190219, end: 20190220
  2. BENDAMUSTINE HYDROCHLORIDE. [Suspect]
     Active Substance: BENDAMUSTINE HYDROCHLORIDE
     Dosage: 90 MG/M2, CYCLIC (ONCE DAILY)
     Route: 042

REACTIONS (3)
  - Injection site pain [Recovering/Resolving]
  - Prescribed underdose [Unknown]
  - Injection site vasculitis [Recovering/Resolving]

NARRATIVE: CASE EVENT DATE: 20190220
